FAERS Safety Report 21704611 (Version 1)
Quarter: 2022Q4

REPORT INFORMATION
  Report Type: Spontaneous
  Country: DE (occurrence: DE)
  Receive Date: 20221209
  Receipt Date: 20221209
  Transmission Date: 20230113
  Serious: Yes (Other)
  Sender: FDA-Public Use
  Company Number: DE-drreddys-LIT/GER/22/0157998

PATIENT
  Sex: Female

DRUGS (7)
  1. LEVETIRACETAM [Suspect]
     Active Substance: LEVETIRACETAM
     Indication: Malignant atrophic papulosis
  2. CYCLOPHOSPHAMIDE [Suspect]
     Active Substance: CYCLOPHOSPHAMIDE
     Indication: Malignant atrophic papulosis
     Dosage: LOW DOSE 25 MG/M? PER DAY
  3. ASPIRIN [Suspect]
     Active Substance: ASPIRIN
     Indication: Malignant atrophic papulosis
     Dosage: AGE 9 YEARS
  4. TOCILIZUMAB [Concomitant]
     Active Substance: TOCILIZUMAB
     Indication: Malignant atrophic papulosis
     Dosage: TOCILIZUMAB (200 MG EVERY 2 WEEKS FROM AGE 8 TO 9 YEARS)
  5. METHYLPREDNISOLONE [Concomitant]
     Active Substance: METHYLPREDNISOLONE
     Indication: Malignant atrophic papulosis
     Dosage: PULSE THERAPY
  6. immunoglobulin [Concomitant]
     Indication: Malignant atrophic papulosis
     Route: 042
  7. RITUXIMAB [Concomitant]
     Active Substance: RITUXIMAB
     Indication: Malignant atrophic papulosis
     Dosage: 2 DOSES OF RITUXIMAB 375 MG/M2

REACTIONS (4)
  - Malignant atrophic papulosis [Recovering/Resolving]
  - Disease progression [Recovering/Resolving]
  - Somnolence [Unknown]
  - Product use in unapproved indication [Unknown]
